FAERS Safety Report 14869921 (Version 2)
Quarter: 2018Q2

REPORT INFORMATION
  Report Type: Report from Study
  Country: US (occurrence: US)
  Receive Date: 20180509
  Receipt Date: 20180606
  Transmission Date: 20180711
  Serious: Yes (Death, Hospitalization)
  Sender: FDA-Public Use
  Company Number: US-BAYER-2018-084663

PATIENT
  Age: 50 Year
  Sex: Male
  Weight: 80.91 kg

DRUGS (2)
  1. STIVARGA [Suspect]
     Active Substance: REGORAFENIB
     Indication: RECTAL CANCER
     Dosage: 160 MG DAILY, FOR 3 WEEKS
     Route: 048
     Dates: start: 201804
  2. STIVARGA [Suspect]
     Active Substance: REGORAFENIB
     Indication: RECTAL CANCER
     Dosage: 160 MG DAILY, FOR 3 WEEKS
     Route: 048
     Dates: start: 201804, end: 201804

REACTIONS (4)
  - Eating disorder [Unknown]
  - Dehydration [None]
  - Death [Fatal]
  - Thirst [Unknown]

NARRATIVE: CASE EVENT DATE: 201804
